FAERS Safety Report 17016539 (Version 1)
Quarter: 2019Q4

REPORT INFORMATION
  Report Type: Spontaneous
  Country: CA (occurrence: CA)
  Receive Date: 20191111
  Receipt Date: 20191111
  Transmission Date: 20200122
  Serious: Yes (Disabling, Other)
  Sender: FDA-Public Use
  Company Number: CA-BAYER-2019-196610

PATIENT
  Age: 72 Year
  Sex: Male
  Weight: 63.49 kg

DRUGS (1)
  1. CIPRO [Suspect]
     Active Substance: CIPROFLOXACIN HYDROCHLORIDE
     Indication: PROSTATE INFECTION
     Dosage: 500 MG, BID
     Route: 048

REACTIONS (7)
  - Dissociation [Unknown]
  - Pain [Unknown]
  - Neuropathy peripheral [Unknown]
  - Confusional state [Unknown]
  - Visual impairment [Unknown]
  - Wheelchair user [Unknown]
  - Tendonitis [Unknown]
